FAERS Safety Report 23143562 (Version 2)
Quarter: 2024Q1

REPORT INFORMATION
  Report Type: Report from Study
  Country: CA (occurrence: CA)
  Receive Date: 20231103
  Receipt Date: 20240229
  Transmission Date: 20240410
  Serious: Yes (Other)
  Sender: FDA-Public Use
  Company Number: CA-002147023-NVSC2023CA231552

PATIENT
  Sex: Male

DRUGS (2)
  1. LEQVIO [Suspect]
     Active Substance: INCLISIRAN SODIUM
     Indication: Arteriosclerosis
     Dosage: UNK
     Route: 058
     Dates: start: 201908
  2. LEQVIO [Suspect]
     Active Substance: INCLISIRAN SODIUM
     Indication: Type IIa hyperlipidaemia
     Dosage: UNK
     Route: 058
     Dates: start: 202202

REACTIONS (13)
  - Diabetic metabolic decompensation [Unknown]
  - Cataract [Unknown]
  - Back pain [Unknown]
  - Trismus [Unknown]
  - Ear pain [Unknown]
  - Dyslipidaemia [Unknown]
  - Valsalva maneuver [Unknown]
  - LDLR mutation [Unknown]
  - Blood triglycerides increased [Unknown]
  - High density lipoprotein decreased [Unknown]
  - Glycosylated haemoglobin increased [Unknown]
  - Magnetic resonance imaging abnormal [Unknown]
  - Chest pain [Unknown]

NARRATIVE: CASE EVENT DATE: 20231005
